FAERS Safety Report 5776133-4 (Version None)
Quarter: 2008Q2

REPORT INFORMATION
  Report Type: 
  Country: None (occurrence: None)
  Receive Date: 20080613
  Receipt Date: 20080529
  Transmission Date: 20081010
  Serious: Yes (Hospitalization)
  Sender: FDA-Public Use
  Company Number: DSA_31945_2008

PATIENT
  Sex: Female

DRUGS (5)
  1. LORAZEPAM [Suspect]
     Indication: DRUG USE FOR UNKNOWN INDICATION
     Dosage: (0.5 MG BID ORAL)
     Route: 048
  2. CYMBALTA [Suspect]
     Indication: DEPRESSION
     Dosage: (DF ORAL)
     Route: 048
  3. ERGENYL CHRONO (ERGENYL CHRONO - VALPROATE SODIUM / VALPROIC ACID) (NO [Suspect]
     Indication: DRUG USE FOR UNKNOWN INDICATION
     Dosage: (300 MG BID ORAL)
     Route: 048
  4. REMERGIL (REMERGIL - MIRTAZAPINE) (NOT SPECIFIED) [Suspect]
     Indication: DRUG USE FOR UNKNOWN INDICATION
     Dosage: (45 MG QD ORAL)
     Route: 048
  5. TRUXAL - CHLORPROTHIXENE HYDROCHLORIDE [Suspect]
     Indication: DRUG USE FOR UNKNOWN INDICATION
     Dosage: (50 MG BID ORAL)
     Route: 048

REACTIONS (3)
  - MYDRIASIS [None]
  - SOPOR [None]
  - TACHYCARDIA [None]
